FAERS Safety Report 15956074 (Version 1)
Quarter: 2019Q1

REPORT INFORMATION
  Report Type: Spontaneous
  Country: US (occurrence: US)
  Receive Date: 20190213
  Receipt Date: 20190213
  Transmission Date: 20190417
  Serious: No
  Sender: FDA-Public Use
  Company Number: US-DRREDDYS-USA/USA/19/0107630

PATIENT
  Age: 75 Year
  Sex: Female
  Weight: 63.5 kg

DRUGS (3)
  1. ATORVASTATIN [Suspect]
     Active Substance: ATORVASTATIN
     Indication: BLOOD CHOLESTEROL INCREASED
     Dosage: MAYBE STARTED FROM 2013/2014
     Route: 048
  2. QUINAPRIL. [Concomitant]
     Active Substance: QUINAPRIL
     Indication: HYPERTENSION
     Dosage: STARTED MAY BE AROUND 2008.
  3. HYDROCHLOROTHIAZIDE. [Concomitant]
     Active Substance: HYDROCHLOROTHIAZIDE
     Indication: HYPERTENSION
     Dosage: STARTED PROBABLY AROUND 2003.

REACTIONS (3)
  - Myalgia [Recovered/Resolved]
  - Pain in extremity [None]
  - Arthralgia [Recovered/Resolved]

NARRATIVE: CASE EVENT DATE: 201707
